FAERS Safety Report 6847770-0 (Version None)
Quarter: 2010Q3

REPORT INFORMATION
  Report Type: 
  Country: None (occurrence: None)
  Receive Date: 20100716
  Receipt Date: 20100713
  Transmission Date: 20110219
  Serious: Yes (Hospitalization)
  Sender: FDA-Public Use
  Company Number: PHHO2010NL10252

PATIENT
  Sex: Male

DRUGS (2)
  1. NEORAL [Suspect]
     Indication: RENAL TRANSPLANT
     Dosage: 75 MG, BID
     Route: 048
     Dates: start: 20091222
  2. EVEROLIMUS [Concomitant]
     Indication: RENAL TRANSPLANT
     Dosage: 0.75
     Route: 048
     Dates: start: 20091222

REACTIONS (2)
  - CHEST PAIN [None]
  - PULMONARY EMBOLISM [None]
